FAERS Safety Report 9712735 (Version 1)
Quarter: 2013Q4

REPORT INFORMATION
  Report Type: Spontaneous
  Country: US (occurrence: None)
  Receive Date: 20131125
  Receipt Date: 20131125
  Transmission Date: 20140711
  Serious: Yes (Hospitalization)
  Sender: FDA-Public Use
  Company Number: None

PATIENT
  Sex: Male

DRUGS (1)
  1. BOTOX 200 UNITS ALLERGAN [Suspect]
     Indication: MIGRAINE
     Dosage: EVERY 3 MONTHS
     Route: 030
     Dates: start: 201308, end: 201311

REACTIONS (3)
  - Headache [None]
  - Convulsion [None]
  - Concussion [None]
